FAERS Safety Report 6224673-6 (Version None)
Quarter: 2009Q2

REPORT INFORMATION
  Report Type: 
  Country: None (occurrence: None)
  Receive Date: 20090612
  Receipt Date: 20090325
  Transmission Date: 20091009
  Serious: No
  Sender: FDA-Public Use
  Company Number: US-ABBOTT-09P-163-0564769-00

PATIENT
  Weight: 53.118 kg

DRUGS (4)
  1. HUMIRA [Suspect]
     Indication: PSORIASIS
     Route: 058
     Dates: start: 20081031
  2. LAMICTAL [Concomitant]
     Indication: POST-TRAUMATIC STRESS DISORDER
  3. PROZAC [Concomitant]
     Indication: DRUG USE FOR UNKNOWN INDICATION
  4. FENTANYL [Concomitant]
     Indication: DRUG USE FOR UNKNOWN INDICATION
     Dosage: PATCH

REACTIONS (4)
  - GRANULOCYTE COUNT INCREASED [None]
  - LYMPHOCYTE COUNT INCREASED [None]
  - RETICULOCYTE COUNT INCREASED [None]
  - VAGINAL INFECTION [None]
